FAERS Safety Report 25254928 (Version 1)
Quarter: 2025Q2

REPORT INFORMATION
  Report Type: Spontaneous
  Country: CL (occurrence: CL)
  Receive Date: 20250430
  Receipt Date: 20250430
  Transmission Date: 20250716
  Serious: Yes (Hospitalization, Other)
  Sender: JOHNSON AND JOHNSON
  Company Number: CL-JNJFOC-20250435950

PATIENT
  Sex: Female

DRUGS (1)
  1. SIMPONI [Suspect]
     Active Substance: GOLIMUMAB
     Indication: Rheumatoid arthritis

REACTIONS (2)
  - Hospitalisation [Unknown]
  - Paternal exposure during pregnancy [Recovered/Resolved]

NARRATIVE: CASE EVENT DATE: 20240801
